FAERS Safety Report 24149049 (Version 3)
Quarter: 2024Q3

REPORT INFORMATION
  Report Type: Spontaneous
  Country: US (occurrence: US)
  Receive Date: 20240729
  Receipt Date: 20240917
  Transmission Date: 20241017
  Serious: No
  Sender: ROCHE
  Company Number: US-ROCHE-10000022128

PATIENT
  Age: 14 Year
  Sex: Male
  Weight: 46.72 kg

DRUGS (2)
  1. NUTROPIN [Suspect]
     Active Substance: SOMATROPIN
     Indication: Ill-defined disorder
     Dosage: ONGOING: YES?NUSPIN 10 PEN?10MG/2ML?GENENTECH
     Route: 058
     Dates: start: 202204
  2. NUTROPIN [Suspect]
     Active Substance: SOMATROPIN
     Indication: Pituitary cyst

REACTIONS (5)
  - Device mechanical issue [Unknown]
  - Product dose omission issue [Unknown]
  - Off label use [Unknown]
  - Pain [Unknown]
  - Drug delivery system malfunction [Unknown]

NARRATIVE: CASE EVENT DATE: 20240601
